FAERS Safety Report 19969080 (Version 3)
Quarter: 2021Q4

REPORT INFORMATION
  Report Type: Spontaneous
  Country: US (occurrence: US)
  Receive Date: 20211019
  Receipt Date: 20211116
  Transmission Date: 20220304
  Serious: Yes (Hospitalization, Other)
  Sender: FDA-Public Use
  Company Number: US-PFIZER INC-202101333287

PATIENT
  Age: 80 Year
  Sex: Female

DRUGS (1)
  1. IBRANCE [Suspect]
     Active Substance: PALBOCICLIB
     Dosage: 125 MG
     Dates: start: 20211001, end: 20211015

REACTIONS (4)
  - Dementia Alzheimer^s type [Unknown]
  - Neutropenia [Unknown]
  - Full blood count abnormal [Unknown]
  - Dyspnoea [Unknown]
